FAERS Safety Report 19503191 (Version 1)
Quarter: 2021Q3

REPORT INFORMATION
  Report Type: Spontaneous
  Country: BR (occurrence: BR)
  Receive Date: 20210707
  Receipt Date: 20210707
  Transmission Date: 20211014
  Serious: Yes (Hospitalization, Other)
  Sender: FDA-Public Use
  Company Number: BR-ASTRAZENECA-2021A589219

PATIENT
  Sex: Female

DRUGS (1)
  1. SYMBICORT [Suspect]
     Active Substance: BUDESONIDE\FORMOTEROL FUMARATE DIHYDRATE
     Dosage: 160/4.5 MCG,UNKNOWN UNKNOWN
     Route: 055

REACTIONS (4)
  - Product administration error [Not Recovered/Not Resolved]
  - COVID-19 [Unknown]
  - Respiratory disorder [Not Recovered/Not Resolved]
  - Drug delivery system issue [Unknown]
